FAERS Safety Report 16692713 (Version 2)
Quarter: 2019Q3

REPORT INFORMATION
  Report Type: Spontaneous
  Country: US (occurrence: US)
  Receive Date: 20190812
  Receipt Date: 20190911
  Transmission Date: 20191004
  Serious: No
  Sender: FDA-Public Use
  Company Number: US-009507513-1908USA002284

PATIENT
  Age: 16 Year
  Sex: Female
  Weight: 87.08 kg

DRUGS (3)
  1. KYLEENA [Concomitant]
     Active Substance: LEVONORGESTREL
     Indication: CONTRACEPTION
     Dosage: PER UTERUS
     Dates: start: 20190621
  2. CYTOTEC [Concomitant]
     Active Substance: MISOPROSTOL
     Dosage: 1 TABLET ORALLY AT BEDTIME/MORNING OF PROCEDURE
     Route: 048
  3. NEXPLANON [Suspect]
     Active Substance: ETONOGESTREL
     Indication: CONTRACEPTION
     Dosage: IMPLANT, LEFT ARM
     Route: 059
     Dates: start: 20160412

REACTIONS (7)
  - Incorrect product administration duration [Unknown]
  - Contusion [Unknown]
  - Complication associated with device [Not Recovered/Not Resolved]
  - Complication of device removal [Not Recovered/Not Resolved]
  - Incision site haemorrhage [Unknown]
  - Cervix enlargement [Unknown]
  - Weight increased [Not Recovered/Not Resolved]

NARRATIVE: CASE EVENT DATE: 201708
